FAERS Safety Report 6607807-0 (Version None)
Quarter: 2010Q1

REPORT INFORMATION
  Report Type: 
  Country: None (occurrence: None)
  Receive Date: 20100225
  Receipt Date: 20100225
  Transmission Date: 20100710
  Serious: Yes (Other)
  Sender: FDA-Public Use
  Company Number: None

PATIENT
  Age: 62 Year
  Sex: Female
  Weight: 77.1115 kg

DRUGS (1)
  1. ZICAM COLD REMEDY-RAPIDMELTS NOT LISTED ZICAM LLC [Suspect]
     Indication: NASOPHARYNGITIS
     Dosage: I PO Q3H SL
     Route: 060
     Dates: start: 20100103, end: 20100105

REACTIONS (7)
  - AGEUSIA [None]
  - DISCOMFORT [None]
  - EATING DISORDER [None]
  - FEAR [None]
  - GLOSSODYNIA [None]
  - INCORRECT DRUG ADMINISTRATION DURATION [None]
  - SENSORY LOSS [None]
